FAERS Safety Report 18749772 (Version 1)
Quarter: 2021Q1

REPORT INFORMATION
  Report Type: Spontaneous
  Country: SE (occurrence: SE)
  Receive Date: 20210117
  Receipt Date: 20210117
  Transmission Date: 20210419
  Serious: Yes (Other)
  Sender: FDA-Public Use
  Company Number: SE-CELLTRION INC.-2020SE029282

PATIENT

DRUGS (1)
  1. REMSIMA [Suspect]
     Active Substance: INFLIXIMAB
     Indication: SPONDYLOARTHROPATHY
     Dosage: 250 MG, 1 M (EVERY OTHER MONTH)
     Route: 042
     Dates: start: 201708

REACTIONS (2)
  - Spermatozoa progressive motility decreased [Unknown]
  - Infertility male [Unknown]

NARRATIVE: CASE EVENT DATE: 201708
